FAERS Safety Report 5551495-1 (Version None)
Quarter: 2007Q4

REPORT INFORMATION
  Report Type: 
  Country: None (occurrence: None)
  Receive Date: 20071212
  Receipt Date: 20071130
  Transmission Date: 20080405
  Serious: Yes (Other)
  Sender: FDA-Public Use
  Company Number: BR-PFIZER INC-2007102064

PATIENT
  Sex: Female

DRUGS (4)
  1. FRONTAL [Suspect]
     Indication: ANXIETY
     Route: 048
     Dates: start: 20060101, end: 20071127
  2. FRONTAL [Suspect]
     Indication: INSOMNIA
  3. ALL OTHER THERAPEUTIC PRODUCTS [Concomitant]
  4. PROPRANOLOL [Concomitant]

REACTIONS (8)
  - BLOOD PRESSURE INCREASED [None]
  - DIZZINESS [None]
  - HEADACHE [None]
  - MALAISE [None]
  - MUSCLE CONTRACTURE [None]
  - NECK PAIN [None]
  - SEDATION [None]
  - SOMNOLENCE [None]
